FAERS Safety Report 10682153 (Version 2)
Quarter: 2015Q2

REPORT INFORMATION
  Report Type: Spontaneous
  Country: US (occurrence: US)
  Receive Date: 20141230
  Receipt Date: 20150424
  Transmission Date: 20150821
  Serious: No
  Sender: FDA-Public Use
  Company Number: US-PFIZER INC-2014357081

PATIENT
  Age: 66 Year
  Sex: Male
  Weight: 95 kg

DRUGS (2)
  1. VIAGRA [Suspect]
     Active Substance: SILDENAFIL CITRATE
     Dosage: 50 MG SAMPLES HALF A DOZEN TIMES
  2. PLAVIX [Concomitant]
     Active Substance: CLOPIDOGREL BISULFATE
     Dosage: UNK

REACTIONS (4)
  - Suspected counterfeit product [Unknown]
  - Nasal congestion [Unknown]
  - Drug ineffective [Unknown]
  - Headache [Unknown]
